FAERS Safety Report 8383129-5 (Version None)
Quarter: 2012Q2

REPORT INFORMATION
  Report Type: 
  Country: None (occurrence: None)
  Receive Date: 20120524
  Receipt Date: 20120515
  Transmission Date: 20120825
  Serious: Yes (Hospitalization)
  Sender: FDA-Public Use
  Company Number: JP-VERTEX PHARMACEUTICALS INC.-AE-2012-007322

PATIENT
  Age: 62 Year
  Sex: Male

DRUGS (12)
  1. REBETOL [Concomitant]
     Indication: HEPATITIS C
     Route: 048
     Dates: start: 20120314
  2. CANDESARTAN CILEXETIL [Concomitant]
     Route: 048
     Dates: start: 20040628
  3. TALION OD [Concomitant]
     Route: 048
     Dates: start: 20120314
  4. FERROUS CITRATE [Concomitant]
     Route: 048
     Dates: start: 20120228, end: 20120426
  5. URSO 250 [Concomitant]
     Route: 048
     Dates: start: 20030920
  6. ALLOPURINOL [Concomitant]
     Route: 048
     Dates: start: 20050920
  7. URALYT [Concomitant]
     Route: 048
     Dates: start: 20050920
  8. PEG-INTRON [Concomitant]
     Indication: HEPATITIS C
     Route: 058
     Dates: start: 20120314
  9. LANSOPRAZOLE [Concomitant]
     Route: 048
     Dates: start: 20090626
  10. ALINAMIN-F [Concomitant]
     Route: 048
     Dates: start: 20100629
  11. TELAVIC (TELAPREVIR) [Suspect]
     Indication: HEPATITIS C
     Route: 048
     Dates: start: 20120314, end: 20120320
  12. TELAVIC (TELAPREVIR) [Suspect]
     Route: 048
     Dates: start: 20120321

REACTIONS (1)
  - BLOOD CREATININE INCREASED [None]
